FAERS Safety Report 6916551-1 (Version None)
Quarter: 2010Q3

REPORT INFORMATION
  Report Type: 
  Country: None (occurrence: None)
  Receive Date: 20100809
  Receipt Date: 20100809
  Transmission Date: 20110219
  Serious: Yes (Life-Threatening, Hospitalization)
  Sender: FDA-Public Use
  Company Number: None

PATIENT
  Age: 21 Year
  Sex: Female
  Weight: 73.9363 kg

DRUGS (1)
  1. LOESTRIN 24 FE [Suspect]
     Indication: ENDOMETRIOSIS
     Dosage: 1 MG/20 MCG QD PO
     Route: 048
     Dates: start: 20100620, end: 20100723

REACTIONS (2)
  - PULMONARY EMBOLISM [None]
  - VAGINAL HAEMORRHAGE [None]
